FAERS Safety Report 6811346-1 (Version None)
Quarter: 2010Q2

REPORT INFORMATION
  Report Type: 
  Country: None (occurrence: None)
  Receive Date: 20100630
  Receipt Date: 20100222
  Transmission Date: 20101027
  Serious: No
  Sender: FDA-Public Use
  Company Number: US-AMGEN-KDL379611

PATIENT
  Age: 80 Year
  Sex: Male

DRUGS (1)
  1. PROCRIT [Suspect]
     Indication: MYELODYSPLASTIC SYNDROME
     Route: 058
     Dates: start: 20080101

REACTIONS (2)
  - HAEMOGLOBIN DECREASED [None]
  - UNDERDOSE [None]
